FAERS Safety Report 22064032 (Version 2)
Quarter: 2023Q1

REPORT INFORMATION
  Report Type: Spontaneous
  Country: US (occurrence: US)
  Receive Date: 20230306
  Receipt Date: 20230314
  Transmission Date: 20230417
  Serious: Yes (Other)
  Sender: FDA-Public Use
  Company Number: US-MYLANLABS-2023M1022553

PATIENT
  Sex: Female

DRUGS (5)
  1. LYRICA [Suspect]
     Active Substance: PREGABALIN
     Indication: Tremor
     Dosage: UNK
     Route: 065
     Dates: start: 2017, end: 2018
  2. LYRICA [Suspect]
     Active Substance: PREGABALIN
     Indication: Paraesthesia
  3. RITUXAN [Concomitant]
     Active Substance: RITUXIMAB
     Dosage: UNK
     Route: 065
  4. ENSPRYNG [Concomitant]
     Active Substance: SATRALIZUMAB-MWGE
     Dosage: UNK
     Route: 065
  5. GABAPENTIN [Concomitant]
     Active Substance: GABAPENTIN
     Dosage: UNK
     Route: 065

REACTIONS (19)
  - Paralysis [Unknown]
  - Suicidal ideation [Unknown]
  - Syncope [Unknown]
  - CD19 lymphocytes increased [Unknown]
  - Blood immunoglobulin G decreased [Unknown]
  - Migraine [Unknown]
  - Immune system disorder [Unknown]
  - Full blood count abnormal [Unknown]
  - Sinusitis [Unknown]
  - Tremor [Unknown]
  - Glycosylated haemoglobin increased [Unknown]
  - Medication error [Unknown]
  - Depression [Unknown]
  - Pain [Unknown]
  - Euphoric mood [Recovered/Resolved]
  - Asthenia [Unknown]
  - Nausea [Unknown]
  - Fall [Unknown]
  - Gait disturbance [Unknown]
